FAERS Safety Report 7356588-4 (Version None)
Quarter: 2011Q1

REPORT INFORMATION
  Report Type: 
  Country: None (occurrence: None)
  Receive Date: 20110316
  Receipt Date: 20110303
  Transmission Date: 20110831
  Serious: Yes (Hospitalization, Other)
  Sender: FDA-Public Use
  Company Number: PHHY2010BR67202

PATIENT
  Sex: Female
  Weight: 54 kg

DRUGS (8)
  1. METHOTREXATE [Concomitant]
     Indication: RHEUMATOID ARTHRITIS
     Dosage: ONE CAPSULE PER WEEK
     Route: 048
  2. RIVOTRIL [Concomitant]
     Indication: SLEEP DISORDER
     Dosage: 1/2 TABLET AT NIGHT
     Route: 048
  3. OS-CAL D [Concomitant]
     Indication: OSTEOPOROSIS
     Dosage: ONE CAPSULE BID
     Route: 048
  4. EXELON [Suspect]
     Indication: DEMENTIA ALZHEIMER'S TYPE
     Dosage: 1 DF, BID
     Route: 048
  5. SOMALGIN [Concomitant]
     Dosage: 1 DF, QD
     Route: 048
  6. ALENDRONATE SODIUM [Concomitant]
     Indication: OSTEOPOROSIS
     Dosage: ONE TABLET PER WEEK
     Route: 048
  7. SEROQUEL [Concomitant]
     Indication: DEMENTIA ALZHEIMER'S TYPE
     Dosage: ONE TABLET AT NIGHT
     Route: 048
  8. ETANERCEPT [Concomitant]
     Indication: RHEUMATOID ARTHRITIS
     Dosage: ONE APPLICATION PER WEEK
     Route: 058

REACTIONS (7)
  - CEREBRAL ISCHAEMIA [None]
  - CEREBROVASCULAR ACCIDENT [None]
  - LOSS OF CONSCIOUSNESS [None]
  - CONVULSION [None]
  - DIZZINESS [None]
  - BLOOD PRESSURE INCREASED [None]
  - HEADACHE [None]
